FAERS Safety Report 5997470-4 (Version None)
Quarter: 2008Q4

REPORT INFORMATION
  Report Type: 
  Country: None (occurrence: None)
  Receive Date: 20081212
  Receipt Date: 20081111
  Transmission Date: 20090506
  Serious: No
  Sender: FDA-Public Use
  Company Number: US-ABBOTT-08P-163-0487428-00

PATIENT
  Age: 56 Year
  Sex: Female

DRUGS (2)
  1. HUMIRA [Suspect]
     Indication: RHEUMATOID ARTHRITIS
     Dates: start: 20071101
  2. HUMIRA [Suspect]
     Indication: RHEUMATOID ARTHRITIS
     Dates: start: 20080901

REACTIONS (6)
  - ARTHRALGIA [None]
  - DRY MOUTH [None]
  - INCORRECT DOSE ADMINISTERED [None]
  - INJECTION SITE ERYTHEMA [None]
  - OEDEMA MOUTH [None]
  - SWOLLEN TONGUE [None]
